FAERS Safety Report 8537169-3 (Version None)
Quarter: 2012Q3

REPORT INFORMATION
  Report Type: 
  Country: None (occurrence: None)
  Receive Date: 20120725
  Receipt Date: 20120719
  Transmission Date: 20120928
  Serious: Yes (Hospitalization)
  Sender: FDA-Public Use
  Company Number: JP-ABBOTT-12P-087-0958165-00

PATIENT
  Sex: Male

DRUGS (10)
  1. DICLOFENAC SODIUM [Concomitant]
     Indication: HEADACHE
     Dates: start: 20081110
  2. KALETRA [Suspect]
     Indication: HIV INFECTION
     Dosage: 6 TABLETS DAILY
     Route: 048
     Dates: start: 20050613, end: 20061126
  3. TEMOCAPRIL HYDROCHLORIDE [Concomitant]
     Dates: end: 20080810
  4. ASPIRIN [Concomitant]
     Indication: CEREBRAL INFARCTION
  5. DIAZEPAM [Concomitant]
     Indication: HEADACHE
     Dates: start: 20081110, end: 20110518
  6. TEMOCAPRIL HYDROCHLORIDE [Concomitant]
     Indication: HYPERTENSION
  7. KALETRA [Suspect]
     Dosage: 4 TABLETS DAILY
     Dates: start: 20061127
  8. TRUVADA [Suspect]
     Indication: HIV INFECTION
     Dosage: 1 TABLET DAILY
     Route: 048
     Dates: start: 20061127
  9. ETIZOLAM [Concomitant]
     Indication: INSOMNIA
     Dates: start: 20090501
  10. ETIZOLAM [Concomitant]
     Dates: end: 20090430

REACTIONS (4)
  - INGUINAL HERNIA [None]
  - BETA 2 MICROGLOBULIN URINE INCREASED [None]
  - SCIATICA [None]
  - DIABETES MELLITUS [None]
